FAERS Safety Report 20060648 (Version 1)
Quarter: 2021Q4

REPORT INFORMATION
  Report Type: Spontaneous
  Country: US (occurrence: US)
  Receive Date: 20211112
  Receipt Date: 20211112
  Transmission Date: 20220303
  Serious: No
  Sender: FDA-Public Use
  Company Number: US-CIPLA LTD.-2021US06672

PATIENT

DRUGS (5)
  1. GABAPENTIN [Suspect]
     Active Substance: GABAPENTIN
     Indication: Neuralgia
     Dosage: 100 MILLIGRAM, TID
     Route: 065
     Dates: start: 20210811, end: 202109
  2. GABAPENTIN [Suspect]
     Active Substance: GABAPENTIN
     Indication: Nerve compression
     Dosage: 300 MILLIGRAM, TID
     Route: 065
     Dates: start: 202109, end: 202109
  3. GABAPENTIN [Suspect]
     Active Substance: GABAPENTIN
     Dosage: 200 MG PER DAY + 100 MG (BID), BID
     Route: 065
     Dates: start: 202109, end: 202109
  4. GABAPENTIN [Suspect]
     Active Substance: GABAPENTIN
     Dosage: 100 MILLIGRAM, BID
     Route: 065
     Dates: start: 202109
  5. VICODIN [Concomitant]
     Active Substance: ACETAMINOPHEN\HYDROCODONE BITARTRATE
     Indication: Nerve compression
     Dosage: HALF A TABLET, BID
     Route: 065
     Dates: start: 20210811, end: 202109

REACTIONS (7)
  - Supraventricular extrasystoles [Unknown]
  - Condition aggravated [Recovering/Resolving]
  - Palpitations [Unknown]
  - Off label use [Unknown]
  - Product use in unapproved indication [Unknown]
  - Drug titration error [Unknown]
  - Therapeutic response unexpected [Unknown]

NARRATIVE: CASE EVENT DATE: 20210101
